FAERS Safety Report 9082903 (Version 1)
Quarter: 2013Q1

REPORT INFORMATION
  Report Type: Report from Study
  Country: US (occurrence: US)
  Receive Date: 20130130
  Receipt Date: 20130130
  Transmission Date: 20140127
  Serious: No
  Sender: FDA-Public Use
  Company Number: US-ABBOTT-12P-163-0979463-00

PATIENT
  Age: 68 Year
  Sex: Male

DRUGS (14)
  1. HUMIRA [Suspect]
     Indication: PSORIASIS
     Dates: start: 20120711, end: 20120912
  2. MULTI VITAMIN [Concomitant]
     Indication: PRODUCT USED FOR UNKNOWN INDICATION
  3. TOPROL [Concomitant]
     Indication: CARDIOVASCULAR EVENT PROPHYLAXIS
  4. ZOLOFT [Concomitant]
     Indication: ANXIETY
  5. NORVASC [Concomitant]
     Indication: BLOOD PRESSURE
  6. WELLBUTRIN [Concomitant]
     Indication: ANXIETY
  7. SYNTHROID [Concomitant]
     Indication: THYROID DISORDER
     Dosage: 0.15MG ALTERNATING WITH 0.30MG
  8. CRESTOR [Concomitant]
     Indication: BLOOD CHOLESTEROL
     Dosage: 40MG ALTERNATING WITH 60 MG
  9. VITAMIN C [Concomitant]
     Indication: PRODUCT USED FOR UNKNOWN INDICATION
  10. LISINOPRIL [Concomitant]
     Indication: BLOOD PRESSURE
  11. PANTOPRAZOLE [Concomitant]
     Indication: PRODUCT USED FOR UNKNOWN INDICATION
  12. WARFARIN [Concomitant]
     Indication: CARDIAC ASSISTANCE DEVICE USER
     Dosage: 2MG ALTERNATING WITH 4MG
  13. WARFARIN [Concomitant]
     Indication: ANTICOAGULANT THERAPY
  14. TRILIPIX [Concomitant]
     Indication: PRODUCT USED FOR UNKNOWN INDICATION

REACTIONS (5)
  - Malaise [Not Recovered/Not Resolved]
  - Myalgia [Not Recovered/Not Resolved]
  - Insomnia [Not Recovered/Not Resolved]
  - Stress [Not Recovered/Not Resolved]
  - Staphylococcal infection [Not Recovered/Not Resolved]
